FAERS Safety Report 5490588-4 (Version None)
Quarter: 2007Q4

REPORT INFORMATION
  Report Type: 
  Country: None (occurrence: None)
  Receive Date: 20071019
  Receipt Date: 20071009
  Transmission Date: 20080405
  Serious: Yes (Other)
  Sender: FDA-Public Use
  Company Number: US-JNJFOC-20071002667

PATIENT
  Age: 29 Year
  Sex: Female
  Weight: 54.89 kg

DRUGS (9)
  1. MONISTAT 1 COMBINATION PACK [Suspect]
     Route: 067
  2. MONISTAT 1 COMBINATION PACK [Suspect]
     Indication: FUNGAL INFECTION
     Route: 067
  3. MONISTAT 1 COMBINATION PACK [Suspect]
     Route: 061
  4. MONISTAT 1 COMBINATION PACK [Suspect]
     Route: 061
  5. MONISTAT 3 CREAM COMBINATION PACK [Suspect]
     Route: 067
  6. MONISTAT 3 CREAM COMBINATION PACK [Suspect]
     Indication: FUNGAL INFECTION
     Route: 067
  7. MONISTAT 3 CREAM COMBINATION PACK [Suspect]
     Route: 061
  8. MONISTAT 3 CREAM COMBINATION PACK [Suspect]
     Route: 061
  9. BIRTH CONTROL PILLS [Concomitant]
     Route: 065

REACTIONS (7)
  - ABDOMINAL PAIN [None]
  - CONVULSION [None]
  - DRUG INEFFECTIVE [None]
  - PAIN [None]
  - PYREXIA [None]
  - VULVOVAGINAL BURNING SENSATION [None]
  - VULVOVAGINAL PRURITUS [None]
